FAERS Safety Report 9916480 (Version 2)
Quarter: 2014Q1

REPORT INFORMATION
  Report Type: Spontaneous
  Country: JP (occurrence: JP)
  Receive Date: 20140221
  Receipt Date: 20140320
  Transmission Date: 20141002
  Serious: Yes (Death)
  Sender: FDA-Public Use
  Company Number: PHJP2014JP000568

PATIENT
  Sex: Male

DRUGS (2)
  1. TEGRETOL TAB 200MG [Suspect]
     Dosage: UNK UKN, UNK
     Route: 048
  2. PHENOBAL [Suspect]
     Dosage: UNK UKN, UNK
     Route: 065

REACTIONS (2)
  - Marasmus [Fatal]
  - Barbiturates positive [Unknown]
